FAERS Safety Report 4416676-9 (Version None)
Quarter: 2004Q2

REPORT INFORMATION
  Report Type: 
  Country: None (occurrence: None)
  Receive Date: 20040630
  Receipt Date: 20031106
  Transmission Date: 20050107
  Serious: Yes (Other)
  Sender: FDA-Public Use
  Company Number: WAES 0311USA00821

PATIENT
  Age: 43 Year
  Sex: Female
  Weight: 98.8842 kg

DRUGS (2)
  1. HYZAAR [Suspect]
     Indication: HYPERTENSION
     Dosage: 50-12.5 MG/DAILY/PO
     Route: 048
     Dates: start: 20031029, end: 20031103
  2. DESYREL [Concomitant]

REACTIONS (1)
  - PRURITUS [None]
